FAERS Safety Report 5045226-1 (Version None)
Quarter: 2006Q3

REPORT INFORMATION
  Report Type: 
  Country: None (occurrence: None)
  Receive Date: 20060705
  Receipt Date: 20060612
  Transmission Date: 20061208
  Serious: Yes (Other)
  Sender: FDA-Public Use
  Company Number: US200606002881

PATIENT
  Age: 82 Year
  Sex: Male

DRUGS (2)
  1. HUMATROPE [Suspect]
     Indication: BLOOD GROWTH HORMONE DECREASED
     Dosage: 3 CLICKS PER DAY
     Dates: start: 20050101
  2. HUMATROPEN [Concomitant]

REACTIONS (5)
  - DECREASED APPETITE [None]
  - FATIGUE [None]
  - PHARMACEUTICAL PRODUCT COMPLAINT [None]
  - PITUITARY TUMOUR RECURRENT [None]
  - WEIGHT DECREASED [None]
